FAERS Safety Report 7878751-6 (Version None)
Quarter: 2011Q4

REPORT INFORMATION
  Report Type: 
  Country: None (occurrence: None)
  Receive Date: 20111101
  Receipt Date: 20111024
  Transmission Date: 20120403
  Serious: Yes (Death, Hospitalization, Other)
  Sender: FDA-Public Use
  Company Number: US-BAYER-200940275NA

PATIENT
  Age: 60 Year
  Sex: Male
  Weight: 115 kg

DRUGS (35)
  1. LEVOPHED [Concomitant]
     Dosage: 7
     Route: 042
     Dates: start: 20061221
  2. AMIODARONE HCL [Concomitant]
     Dosage: 400 MG, BID
     Route: 048
  3. PROTONIX [Concomitant]
     Dosage: 40 MG, QD
     Route: 048
  4. DIGOXIN [Concomitant]
     Dosage: 0.125MG EVERY OTHER DAY
     Route: 048
  5. MILRINONE [Concomitant]
     Dosage: 0.2
     Dates: start: 20061226, end: 20061226
  6. MILRINONE [Concomitant]
     Dosage: 0.375/KG/HR
  7. DOPAMINE HCL [Concomitant]
     Dosage: 2 MCG/KG/MINUTE
     Route: 042
     Dates: start: 20061125, end: 20061125
  8. PRIMACOR [Concomitant]
     Dosage: 0.25/KG/MIN
  9. ACETYLSALICYLIC ACID SRT [Concomitant]
     Dosage: 81 MG, QD
     Route: 048
  10. TRASYLOL [Suspect]
     Indication: VENTRICULAR ASSIST DEVICE INSERTION
     Dosage: 2,000,000 KIU LOADING THEN 50CC/HOUR
     Route: 042
     Dates: start: 20061125, end: 20061125
  11. TRASYLOL [Suspect]
     Dosage: 2,000,000 KIU,THEN 50ML/HOUR
     Route: 042
     Dates: start: 20061226, end: 20061226
  12. MILRINONE [Concomitant]
     Dosage: 0.5
     Dates: start: 20061221
  13. DOPAMINE HCL [Concomitant]
     Dosage: 5
     Dates: start: 20061221
  14. LASIX [Concomitant]
     Dosage: 40 MG, BID
     Route: 042
  15. TRASYLOL [Suspect]
     Dosage: 200 CC THEN 50ML/HOUR
     Route: 042
     Dates: start: 20061221, end: 20061221
  16. HEPARIN [Concomitant]
     Dosage: ONE DOSE 420 MG, ONE DOSE 250 MG
     Route: 042
     Dates: start: 20061125, end: 20061125
  17. HEPARIN [Concomitant]
     Dosage: 400 MG/100 MG
     Dates: start: 20061226, end: 20061226
  18. HEPARIN [Concomitant]
     Dosage: 0.375/KG/HR
  19. LOPRESSOR [Concomitant]
     Dosage: 500 MG, UNK
     Route: 042
     Dates: start: 20061226, end: 20061226
  20. VASOTEC [Concomitant]
  21. ZAROXOLYN [Concomitant]
     Dosage: 5MG 1/2 HOUR PRIOR TO LASIX TWICE DAILY
  22. SPIRONOLACTONE [Concomitant]
     Dosage: 25 MG, BID
     Route: 048
  23. VASOPRESSIN [Concomitant]
     Dosage: 8
     Route: 042
     Dates: start: 20061226, end: 20061226
  24. LEVOPHED [Concomitant]
     Dosage: 4/5
     Route: 042
     Dates: start: 20061125, end: 20061125
  25. MILRINONE [Concomitant]
     Dosage: 0.25 MCG/KG/MIN
     Route: 042
     Dates: start: 20061125, end: 20061125
  26. TOPROL-XL [Concomitant]
     Dosage: 25 MG, QD
     Route: 048
     Dates: end: 20061118
  27. VASOPRESSIN [Concomitant]
     Dosage: 1 UNIT/HR
     Dates: end: 20061125
  28. DOBUTAMINE HCL [Concomitant]
     Dosage: 2.5MCG/KG/MINUTE
     Route: 042
     Dates: start: 20061125, end: 20061125
  29. EPINEPHRINE [Concomitant]
     Dosage: 2 MCG/MINUTE
     Route: 042
     Dates: start: 20061125, end: 20061125
  30. LOVENOX [Concomitant]
     Dosage: 30 MG, QD
     Route: 058
     Dates: end: 20061118
  31. VASOPRESSIN [Concomitant]
     Dosage: 4 UNITS/HOUR
     Route: 042
     Dates: start: 20061125, end: 20061125
  32. DOBUTAMINE HCL [Concomitant]
     Dosage: 5MCG/KG/MIN
  33. ETOMIDATE [Concomitant]
     Dosage: 20
     Route: 042
     Dates: start: 20061221, end: 20061221
  34. PHENYLEPHRINE HCL [Concomitant]
     Dosage: 80
     Route: 042
     Dates: start: 20061226, end: 20061226
  35. ALTACE [Concomitant]
     Dosage: 20 MG, QD

REACTIONS (13)
  - DEATH [None]
  - MULTI-ORGAN FAILURE [None]
  - UNEVALUABLE EVENT [None]
  - RENAL INJURY [None]
  - EMOTIONAL DISTRESS [None]
  - INJURY [None]
  - ANXIETY [None]
  - FEAR [None]
  - PAIN [None]
  - RENAL IMPAIRMENT [None]
  - RENAL FAILURE [None]
  - ANHEDONIA [None]
  - STRESS [None]
